FAERS Safety Report 16377296 (Version 1)
Quarter: 2019Q2

REPORT INFORMATION
  Report Type: Spontaneous
  Country: CA (occurrence: CA)
  Receive Date: 20190531
  Receipt Date: 20190531
  Transmission Date: 20190711
  Serious: Yes (Other)
  Sender: FDA-Public Use
  Company Number: CA-PFIZER INC-2019229721

PATIENT
  Age: 26 Year
  Sex: Female

DRUGS (2)
  1. EFFEXOR XR [Suspect]
     Active Substance: VENLAFAXINE HYDROCHLORIDE
     Dosage: 150 MG, 1X/DAY
     Route: 048
  2. CIPRALEX [Suspect]
     Active Substance: ESCITALOPRAM OXALATE
     Dosage: 20 MG, 1X/DAY
     Route: 048

REACTIONS (9)
  - Serotonin syndrome [Unknown]
  - Headache [Unknown]
  - Hyperhidrosis [Unknown]
  - Dry mouth [Unknown]
  - Flushing [Unknown]
  - Nausea [Unknown]
  - Nervousness [Unknown]
  - Tremor [Unknown]
  - Pain [Unknown]
